FAERS Safety Report 9065553 (Version 1)
Quarter: 2013Q1

REPORT INFORMATION
  Report Type: Report from Study
  Country: US (occurrence: US)
  Receive Date: 20130131
  Receipt Date: 20130131
  Transmission Date: 20140127
  Serious: No
  Sender: FDA-Public Use
  Company Number: US-ABBOTT-12P-163-1023221-00

PATIENT
  Sex: Female
  Weight: 75.82 kg

DRUGS (12)
  1. HUMIRA [Suspect]
     Indication: RHEUMATOID ARTHRITIS
     Dates: start: 201008
  2. ATENOLOL [Concomitant]
     Indication: HYPERTENSION
  3. CARISOPRODOL [Concomitant]
     Indication: PRODUCT USED FOR UNKNOWN INDICATION
  4. CYMBALTA [Concomitant]
     Indication: PRODUCT USED FOR UNKNOWN INDICATION
  5. IBUPROFEN [Concomitant]
     Indication: FIBROMYALGIA
  6. LORATADINE [Concomitant]
     Indication: HYPERSENSITIVITY
  7. LORAZEPAM [Concomitant]
     Indication: PRODUCT USED FOR UNKNOWN INDICATION
  8. OMEPRAZOLE [Concomitant]
     Indication: GASTRIC ULCER
  9. ORENCIA [Concomitant]
     Indication: RHEUMATOID ARTHRITIS
  10. ORPHENADRINE [Concomitant]
     Indication: FIBROMYALGIA
  11. OXYCODONE [Concomitant]
     Indication: PAIN
  12. PREDNISONE [Concomitant]
     Indication: PRODUCT USED FOR UNKNOWN INDICATION

REACTIONS (1)
  - Drug ineffective [Not Recovered/Not Resolved]
